FAERS Safety Report 5130077-X (Version None)
Quarter: 2006Q4

REPORT INFORMATION
  Report Type: 
  Country: None (occurrence: None)
  Receive Date: 20061013
  Receipt Date: 20060929
  Transmission Date: 20070319
  Serious: Yes (Life-Threatening, Hospitalization)
  Sender: FDA-Public Use
  Company Number: FR200609001398

PATIENT
  Age: 60 Year
  Sex: Male
  Weight: 75 kg

DRUGS (3)
  1. GEMZAR [Suspect]
     Indication: MYCOSIS FUNGOIDES RECURRENT
     Dosage: 1700 MG, OTHER, INTRAVENOUS
     Dates: start: 20060517, end: 20060814
  2. LODOZ (BISOPROLOL FUMARATE, HYDROCHLOROTHIAZIDE) [Concomitant]
  3. ZOFRAN [Concomitant]

REACTIONS (7)
  - ACUTE PULMONARY OEDEMA [None]
  - ASTHENIA [None]
  - ATRIAL FLUTTER [None]
  - GENERALISED OEDEMA [None]
  - OEDEMA PERIPHERAL [None]
  - PLEURAL EFFUSION [None]
  - WEIGHT INCREASED [None]
